FAERS Safety Report 6248638-3 (Version None)
Quarter: 2009Q2

REPORT INFORMATION
  Report Type: 
  Country: None (occurrence: None)
  Receive Date: 20090629
  Receipt Date: 20090625
  Transmission Date: 20091009
  Serious: Yes (Death)
  Sender: FDA-Public Use
  Company Number: NL-JNJFOC-20090608714

PATIENT
  Sex: Male

DRUGS (7)
  1. REMINYL [Suspect]
     Indication: DEMENTIA ALZHEIMER'S TYPE
  2. MADOPAR [Suspect]
     Indication: PARKINSON'S DISEASE
     Route: 065
  3. MARCUMAR [Concomitant]
     Route: 065
  4. FUROSEMIDE INTENSOL [Concomitant]
     Route: 065
  5. LANOXIN [Concomitant]
     Route: 065
  6. METOPROLOL SUCCINATE [Concomitant]
     Route: 065
  7. DIOVAN [Concomitant]
     Route: 065

REACTIONS (1)
  - ARRHYTHMIA [None]
